FAERS Safety Report 4378711-6 (Version None)
Quarter: 2004Q2

REPORT INFORMATION
  Report Type: 
  Country: None (occurrence: None)
  Receive Date: 20040616
  Receipt Date: 20040512
  Transmission Date: 20050107
  Serious: Yes (Life-Threatening, Hospitalization, Other)
  Sender: FDA-Public Use
  Company Number: PHBS2004JP06437

PATIENT
  Age: 77 Year
  Sex: Male
  Weight: 68 kg

DRUGS (10)
  1. NEORAL [Suspect]
     Indication: PSORIASIS
     Dosage: 200 MG/D
     Route: 048
     Dates: start: 20040405, end: 20040501
  2. NEORAL [Suspect]
     Dosage: 100 MG/D
     Route: 048
     Dates: start: 20040501, end: 20040501
  3. RENIVACE [Suspect]
     Indication: HYPERTENSION
     Dosage: 5 MG/D
     Route: 048
  4. DIGOXIN [Suspect]
     Dosage: 0.125 MG/D
     Route: 048
  5. RYTHMODAN [Suspect]
     Indication: ARRHYTHMIA
     Dosage: 20 MG/D
     Route: 048
  6. NORVASC [Concomitant]
     Indication: HYPERTENSION
     Dosage: 5 MG/D
     Route: 048
  7. NITRODERM [Concomitant]
     Dosage: 25 MG/D
     Route: 061
  8. NITOROL [Concomitant]
     Dosage: 20 MG/D
     Route: 048
  9. BENZALIN [Concomitant]
     Dosage: 5 MG/D
     Route: 048
  10. ROHYPNOL [Concomitant]
     Dosage: 1 DF/D
     Route: 048

REACTIONS (5)
  - ANGINA PECTORIS [None]
  - BRADYCARDIA [None]
  - HYPERKALAEMIA [None]
  - LUMBAR SPINAL STENOSIS [None]
  - SURGERY [None]
